FAERS Safety Report 6543441-9 (Version None)
Quarter: 2010Q1

REPORT INFORMATION
  Report Type: 
  Country: None (occurrence: None)
  Receive Date: 20100120
  Receipt Date: 20100118
  Transmission Date: 20100710
  Serious: Yes (Other)
  Sender: FDA-Public Use
  Company Number: A0839951A

PATIENT
  Age: 51 Year
  Sex: Male

DRUGS (5)
  1. LOVAZA [Suspect]
     Dosage: 16CAP PER DAY
     Route: 048
  2. PRAVACHOL [Concomitant]
  3. ANTARA (MICRONIZED) [Concomitant]
  4. NIASPAN [Concomitant]
  5. ASPIRIN [Concomitant]

REACTIONS (1)
  - INTENTIONAL OVERDOSE [None]
